FAERS Safety Report 15628709 (Version 1)
Quarter: 2018Q4

REPORT INFORMATION
  Report Type: Spontaneous
  Country: GB (occurrence: GB)
  Receive Date: 20181116
  Receipt Date: 20181116
  Transmission Date: 20190205
  Serious: Yes (Life-Threatening)
  Sender: FDA-Public Use
  Company Number: GB-TEVA-2018-GB-975337

PATIENT
  Age: 49 Year
  Sex: Female
  Weight: 56 kg

DRUGS (7)
  1. ONDANSETRON HYDROCHLORIDE. [Suspect]
     Active Substance: ONDANSETRON HYDROCHLORIDE
     Indication: NAUSEA
     Dosage: ONE DOSE
     Route: 042
  2. CITALOPRAM [Suspect]
     Active Substance: CITALOPRAM HYDROBROMIDE
     Indication: DEPRESSION
     Dosage: 30 MILLIGRAM DAILY;
     Route: 048
     Dates: start: 20180828, end: 20180918
  3. VITAMIN B [Concomitant]
     Active Substance: VITAMIN B
  4. TERLIPRESSIN ACETATE [Suspect]
     Active Substance: TERLIPRESSIN
     Indication: GASTROINTESTINAL HAEMORRHAGE
     Dosage: 8 MILLIGRAM DAILY; 2 DOSES.
     Route: 042
     Dates: start: 20180915, end: 20180917
  5. OMEPRAZOLE. [Concomitant]
     Active Substance: OMEPRAZOLE
  6. LANSOPRAZOLE. [Concomitant]
     Active Substance: LANSOPRAZOLE
  7. THIAMINE. [Concomitant]
     Active Substance: THIAMINE
     Dosage: 100 MILLIGRAM DAILY; ON MORNING

REACTIONS (3)
  - Ventricular fibrillation [Recovered/Resolved]
  - Electrocardiogram QT prolonged [Recovered/Resolved]
  - Cardiac arrest [Recovered/Resolved]

NARRATIVE: CASE EVENT DATE: 20180917
